FAERS Safety Report 5188053-7 (Version None)
Quarter: 2006Q4

REPORT INFORMATION
  Report Type: 
  Country: None (occurrence: None)
  Receive Date: 20061221
  Receipt Date: 20061212
  Transmission Date: 20070319
  Serious: Yes (Other)
  Sender: FDA-Public Use
  Company Number: PHBS2006JP19372

PATIENT
  Sex: Female

DRUGS (1)
  1. NEORAL [Suspect]
     Indication: SJOGREN'S SYNDROME
     Dosage: 100 MG/D
     Route: 048
     Dates: start: 20061201

REACTIONS (2)
  - LYMPHOCYTE COUNT DECREASED [None]
  - PYREXIA [None]
